FAERS Safety Report 21152040 (Version 1)
Quarter: 2022Q3

REPORT INFORMATION
  Report Type: Spontaneous
  Country: US (occurrence: US)
  Receive Date: 20220730
  Receipt Date: 20220730
  Transmission Date: 20221027
  Serious: No
  Sender: FDA-Public Use
  Company Number: US-SA-SAC20220725001908

PATIENT
  Sex: Female

DRUGS (2)
  1. FABRAZYME [Suspect]
     Active Substance: AGALSIDASE BETA
     Indication: Fabry^s disease
     Dosage: 70MG, QOW
     Route: 065
     Dates: start: 20220621
  2. FABRAZYME [Suspect]
     Active Substance: AGALSIDASE BETA
     Dosage: 18 MG; QOW
     Route: 065

REACTIONS (1)
  - Infusion site discomfort [Unknown]
